FAERS Safety Report 18309706 (Version 1)
Quarter: 2020Q3

REPORT INFORMATION
  Report Type: Spontaneous
  Country: US (occurrence: US)
  Receive Date: 20200924
  Receipt Date: 20200924
  Transmission Date: 20201103
  Serious: No
  Sender: FDA-Public Use
  Company Number: US-009507513-2009USA004071

PATIENT
  Age: 64 Year
  Sex: Male

DRUGS (2)
  1. METFORMIN [Concomitant]
     Active Substance: METFORMIN HYDROCHLORIDE
  2. JANUVIA [Suspect]
     Active Substance: SITAGLIPTIN PHOSPHATE
     Dosage: 25 MILLIGRAM, ONCE DAILY
     Route: 048

REACTIONS (3)
  - Product dose omission issue [Unknown]
  - Blood glucose increased [Not Recovered/Not Resolved]
  - Eating disorder [Not Recovered/Not Resolved]

NARRATIVE: CASE EVENT DATE: 20200908
